FAERS Safety Report 8913330 (Version 3)
Quarter: 2014Q3

REPORT INFORMATION
  Report Type: Spontaneous
  Country: TH (occurrence: None)
  Receive Date: 20121113
  Receipt Date: 20140808
  Transmission Date: 20150326
  Serious: Yes (Hospitalization)
  Sender: FDA-Public Use
  Company Number: VAL_00972_2012

PATIENT
  Age: 83 Year
  Sex: Male
  Weight: 51 kg

DRUGS (5)
  1. METOPROLOL TARTRATE. [Suspect]
     Active Substance: METOPROLOL TARTRATE
     Indication: CARDIAC FAILURE
     Route: 048
     Dates: start: 20111202, end: 20121024
  2. FUROSEMIDE. [Concomitant]
     Active Substance: FUROSEMIDE
  3. ASPIRIN. [Concomitant]
     Active Substance: ASPIRIN
  4. SIMVASTATIN. [Concomitant]
     Active Substance: SIMVASTATIN
  5. LCZ696 [Suspect]
     Active Substance: INVESTIGATIONAL PRODUCT
     Indication: CARDIAC FAILURE CHRONIC
     Dosage: (DF [CODE NOT BROKEN] )
     Route: 048
     Dates: start: 20120601, end: 20121024

REACTIONS (6)
  - Hypotension [None]
  - Blood creatinine increased [None]
  - Vertigo [None]
  - Blood glucose increased [None]
  - Renal failure [None]
  - Presyncope [None]

NARRATIVE: CASE EVENT DATE: 20121024
